FAERS Safety Report 11864044 (Version 1)
Quarter: 2015Q4

REPORT INFORMATION
  Report Type: Spontaneous
  Country: US (occurrence: US)
  Receive Date: 20151223
  Receipt Date: 20151223
  Transmission Date: 20160305
  Serious: Yes (Hospitalization)
  Sender: FDA-Public Use
  Company Number: US-BIOGEN-2015BI00164648

PATIENT
  Sex: Male

DRUGS (1)
  1. TECFIDERA [Suspect]
     Active Substance: DIMETHYL FUMARATE
     Indication: MULTIPLE SCLEROSIS
     Route: 065
     Dates: start: 20150717, end: 201509

REACTIONS (4)
  - Gastric disorder [Recovered/Resolved]
  - Central nervous system lesion [Unknown]
  - Malaise [Recovered/Resolved]
  - Fall [Recovered/Resolved]
